FAERS Safety Report 5094895-9 (Version None)
Quarter: 2006Q3

REPORT INFORMATION
  Report Type: 
  Country: None (occurrence: None)
  Receive Date: 20060728
  Receipt Date: 20060517
  Transmission Date: 20061208
  Serious: No
  Sender: FDA-Public Use
  Company Number: 253413

PATIENT
  Age: 57 Year
  Sex: Female

DRUGS (6)
  1. LEVEMIR [Suspect]
     Indication: INSULIN-REQUIRING TYPE II DIABETES MELLITUS
     Dosage: 50 IU, QD, SUBCUTANEOUS
     Route: 058
     Dates: start: 20060516
  2. ACTOS/01460201/(PIOGLITAZONE) [Concomitant]
  3. ALTACE [Concomitant]
  4. LIPITOR [Concomitant]
  5. NIRAVAM (ALPRAZOLAM) [Concomitant]
  6. ASMANEX TWISTHALER [Concomitant]

REACTIONS (2)
  - BLOOD GLUCOSE INCREASED [None]
  - WRONG TECHNIQUE IN DRUG USAGE PROCESS [None]
